FAERS Safety Report 17842577 (Version 9)
Quarter: 2025Q4

REPORT INFORMATION
  Report Type: Spontaneous
  Country: CA (occurrence: CA)
  Receive Date: 20200529
  Receipt Date: 20251201
  Transmission Date: 20260118
  Serious: Yes (Hospitalization, Other)
  Sender: AUROBINDO
  Company Number: CA-AUROBINDO-AUR-APL-2020-025889

PATIENT
  Age: 36 Year
  Sex: Female

DRUGS (38)
  1. BUPIVACAINE [Suspect]
     Active Substance: BUPIVACAINE
     Indication: Epidural anaesthesia
     Dosage: 1 MILLILITER
  2. BUPIVACAINE [Suspect]
     Active Substance: BUPIVACAINE
     Indication: Anaesthesia
  3. ESCITALOPRAM [Suspect]
     Active Substance: ESCITALOPRAM OXALATE
     Indication: Product used for unknown indication
     Dosage: UNK
     Route: 065
  4. LIDOCAINE [Suspect]
     Active Substance: LIDOCAINE
     Indication: Product used for unknown indication
     Dosage: 5.0 MILLILITER
  5. ASPIRIN [Suspect]
     Active Substance: ASPIRIN
     Indication: Product used for unknown indication
     Dosage: UNK
     Route: 065
  6. AZATHIOPRINE [Suspect]
     Active Substance: AZATHIOPRINE
     Indication: Product used for unknown indication
     Dosage: UNK
     Route: 065
  7. BUPIVACAINE [Suspect]
     Active Substance: BUPIVACAINE
     Indication: Epidural anaesthesia
     Dosage: 1 MILLILITER
     Route: 065
  8. BUPIVACAINE [Suspect]
     Active Substance: BUPIVACAINE
     Indication: Anaesthesia
  9. CARBETOCIN [Suspect]
     Active Substance: CARBETOCIN
     Indication: Product used for unknown indication
     Dosage: 100 MICROGRAM
     Route: 065
  10. EPINEPHRINE HYDROCHLORIDE [Suspect]
     Active Substance: EPINEPHRINE HYDROCHLORIDE
     Indication: Product used for unknown indication
     Dosage: UNK
  11. EPINEPHRINE HYDROCHLORIDE [Suspect]
     Active Substance: EPINEPHRINE HYDROCHLORIDE
     Dosage: UNK
     Route: 065
  12. FENTANYL [Concomitant]
     Active Substance: FENTANYL
     Indication: Epidural anaesthesia
     Dosage: 15 MICROGRAM
  13. FENTANYL [Concomitant]
     Active Substance: FENTANYL
     Indication: Anaesthesia
  14. FENTANYL [Suspect]
     Active Substance: FENTANYL
     Indication: Epidural anaesthesia
     Dosage: UNK
  15. FENTANYL [Suspect]
     Active Substance: FENTANYL
     Indication: Anaesthesia
  16. FENTANYL [Suspect]
     Active Substance: FENTANYL
     Indication: Epidural anaesthesia
     Dosage: 15 MICROGRAM
  17. LACTATED RINGERS SOLUTION [Suspect]
     Active Substance: CALCIUM CHLORIDE\POTASSIUM CHLORIDE\SODIUM CHLORIDE\SODIUM LACTATE
     Indication: Product used for unknown indication
     Dosage: UNK
     Route: 065
  18. LANSOPRAZOLE [Suspect]
     Active Substance: LANSOPRAZOLE
     Indication: Product used for unknown indication
     Dosage: UNK
     Route: 065
  19. LANSOPRAZOLE [Suspect]
     Active Substance: LANSOPRAZOLE
     Indication: Product used for unknown indication
     Dosage: UNK
     Route: 065
  20. LIDOCAINE [Suspect]
     Active Substance: LIDOCAINE
     Indication: Product used for unknown indication
     Dosage: UNK
  21. METHYLDOPA [Suspect]
     Active Substance: METHYLDOPA
     Indication: Product used for unknown indication
     Dosage: UNK
     Route: 065
  22. MORPHINE [Suspect]
     Active Substance: MORPHINE
     Indication: Epidural anaesthesia
     Dosage: 200 MICROGRAM
  23. MORPHINE [Suspect]
     Active Substance: MORPHINE
     Indication: Induction of anaesthesia
  24. MORPHINE [Suspect]
     Active Substance: MORPHINE
     Indication: Product used for unknown indication
     Dosage: UNK
     Route: 065
  25. PHENYLEPHRINE [Suspect]
     Active Substance: PHENYLEPHRINE
     Indication: Product used for unknown indication
     Dosage: UNK
  26. PHENYLEPHRINE [Suspect]
     Active Substance: PHENYLEPHRINE
     Indication: Product used for unknown indication
     Dosage: UNK
  27. LANSOPRAZOLE [Suspect]
     Active Substance: LANSOPRAZOLE
     Indication: Product used for unknown indication
     Dosage: UNK
     Route: 065
  28. ALBUTEROL [Suspect]
     Active Substance: ALBUTEROL
     Indication: Product used for unknown indication
     Dosage: UNK
  29. TACROLIMUS [Suspect]
     Active Substance: TACROLIMUS
     Indication: Product used for unknown indication
     Dosage: UNK
     Route: 065
  30. TINZAPARIN [Suspect]
     Active Substance: TINZAPARIN
     Indication: Product used for unknown indication
     Dosage: UNK
     Route: 065
  31. ASPIRIN [Suspect]
     Active Substance: ASPIRIN
     Indication: Product used for unknown indication
     Dosage: UNK
     Route: 065
  32. CALCIUM CHLORIDE [Suspect]
     Active Substance: CALCIUM CHLORIDE
     Indication: Product used for unknown indication
     Dosage: UNK
     Route: 065
  33. FENTANYL [Suspect]
     Active Substance: FENTANYL
     Indication: Epidural anaesthesia
     Dosage: 15 MICROGRAM
  34. FENTANYL [Suspect]
     Active Substance: FENTANYL
     Dosage: UNK
  35. PHENYLEPHRINE [Suspect]
     Active Substance: PHENYLEPHRINE
     Indication: Product used for unknown indication
     Dosage: UNK
     Route: 065
  36. ESCITALOPRAM [Suspect]
     Active Substance: ESCITALOPRAM OXALATE
     Indication: Product used for unknown indication
  37. LIDOCAINEINOREPINEPH [Concomitant]
     Indication: Product used for unknown indication
     Dosage: 5 MILLILITER
  38. EPINEPHRINE [Concomitant]
     Active Substance: EPINEPHRINE
     Indication: Product used for unknown indication
     Dosage: UNK

REACTIONS (10)
  - Dyspnoea [Unknown]
  - Anxiety [Unknown]
  - Premature delivery [Unknown]
  - Normal newborn [Unknown]
  - Premature baby [Unknown]
  - Live birth [Unknown]
  - Maternal exposure during pregnancy [Unknown]
  - Exposure during pregnancy [Unknown]
  - Incorrect route of product administration [Unknown]
  - Off label use [Unknown]
